FAERS Safety Report 14137927 (Version 1)
Quarter: 2017Q4

REPORT INFORMATION
  Report Type: Spontaneous
  Country: FR (occurrence: FR)
  Receive Date: 20171027
  Receipt Date: 20171027
  Transmission Date: 20180321
  Serious: Yes (Congenital Anomaly)
  Sender: FDA-Public Use
  Company Number: FR-JNJFOC-20171027275

PATIENT

DRUGS (4)
  1. URBANYL [Suspect]
     Active Substance: CLOBAZAM
     Indication: POST-TRAUMATIC EPILEPSY
     Route: 064
  2. LAMICTAL [Suspect]
     Active Substance: LAMOTRIGINE
     Indication: POST-TRAUMATIC EPILEPSY
     Route: 064
  3. EPITOMAX [Suspect]
     Active Substance: TOPIRAMATE
     Indication: POST-TRAUMATIC EPILEPSY
     Route: 064
  4. FOLIC ACID. [Concomitant]
     Active Substance: FOLIC ACID
     Indication: PRODUCT USED FOR UNKNOWN INDICATION
     Route: 064

REACTIONS (4)
  - Foetal growth restriction [Not Recovered/Not Resolved]
  - Congenital musculoskeletal anomaly [Not Recovered/Not Resolved]
  - Foetal exposure during pregnancy [Not Recovered/Not Resolved]
  - Heart disease congenital [Not Recovered/Not Resolved]

NARRATIVE: CASE EVENT DATE: 2017
